FAERS Safety Report 4788852-7 (Version None)
Quarter: 2005Q4

REPORT INFORMATION
  Report Type: 
  Country: None (occurrence: None)
  Receive Date: 20051004
  Receipt Date: 20050930
  Transmission Date: 20060501
  Serious: Yes (Life-Threatening, Hospitalization)
  Sender: FDA-Public Use
  Company Number: THQ2005A00857

PATIENT
  Age: 41 Year
  Sex: Male

DRUGS (5)
  1. LANSOPRAZOLE [Suspect]
     Indication: GASTROOESOPHAGEAL REFLUX DISEASE
     Dosage: (20 MG) , PER ORAL
     Route: 048
     Dates: start: 20050830, end: 20050901
  2. CARBAMAZEPINE [Suspect]
     Indication: EPILEPSY
     Dosage: (2 IN 2 D), PER ORAL
     Route: 048
     Dates: start: 19850101
  3. IBUPROFEN [Concomitant]
  4. TYLEX [Concomitant]
  5. LAMOTRIGINE [Concomitant]

REACTIONS (2)
  - CONVULSION [None]
  - DRUG INTERACTION [None]
